FAERS Safety Report 16777732 (Version 1)
Quarter: 2019Q4

REPORT INFORMATION
  Report Type: Spontaneous
  Country: US (occurrence: US)
  Receive Date: 20190905
  Receipt Date: 20190905
  Transmission Date: 20200122
  Serious: Yes (Other)
  Sender: FDA-Public Use
  Company Number: None

PATIENT
  Age: 73 Year
  Sex: Female
  Weight: 172.8 kg

DRUGS (11)
  1. GABAPENTIN. [Concomitant]
     Active Substance: GABAPENTIN
  2. MIRALAX [Concomitant]
     Active Substance: POLYETHYLENE GLYCOL 3350
  3. HYDROMORPHONE [Concomitant]
     Active Substance: HYDROMORPHONE
  4. TYLENOL [Concomitant]
     Active Substance: ACETAMINOPHEN
  5. COENZYME Q10 [Concomitant]
     Active Substance: UBIDECARENONE
  6. VERZENIO [Suspect]
     Active Substance: ABEMACICLIB
     Indication: BREAST CANCER
     Route: 048
     Dates: start: 20190801, end: 20190905
  7. COREG [Concomitant]
     Active Substance: CARVEDILOL
  8. AROMASIN [Concomitant]
     Active Substance: EXEMESTANE
  9. ZOLOFT [Concomitant]
     Active Substance: SERTRALINE HYDROCHLORIDE
  10. LIDOCAINE. [Concomitant]
     Active Substance: LIDOCAINE
  11. DURAGESIC [Concomitant]
     Active Substance: FENTANYL

REACTIONS (1)
  - Diarrhoea [None]

NARRATIVE: CASE EVENT DATE: 20190905
